FAERS Safety Report 9972166 (Version 1)
Quarter: 2014Q1

REPORT INFORMATION
  Report Type: Spontaneous
  Country: US (occurrence: None)
  Receive Date: 20140305
  Receipt Date: 20140305
  Transmission Date: 20141002
  Serious: Yes (Other)
  Sender: FDA-Public Use
  Company Number: None

PATIENT
  Age: 34 Year
  Sex: Female

DRUGS (1)
  1. ELLA [Suspect]
     Indication: CONTRACEPTION
     Dosage: 1 PILL, ONCE, TAKEN BY MOUTH
     Route: 048
     Dates: start: 20140223

REACTIONS (6)
  - Migraine [None]
  - Vulvovaginal pruritus [None]
  - Inflammation [None]
  - Local swelling [None]
  - Pruritus [None]
  - Lip swelling [None]
